FAERS Safety Report 10377317 (Version 1)
Quarter: 2014Q3

REPORT INFORMATION
  Report Type: Spontaneous
  Country: IT (occurrence: IT)
  Receive Date: 20140812
  Receipt Date: 20140812
  Transmission Date: 20150326
  Serious: Yes (Other)
  Sender: FDA-Public Use
  Company Number: PHHY2014IT095892

PATIENT
  Age: 63 Year
  Sex: Male

DRUGS (6)
  1. CISPLATIN. [Suspect]
     Active Substance: CISPLATIN
     Dosage: 40 MG/MQ WEEKLY
  2. EPIRUBICIN [Suspect]
     Active Substance: EPIRUBICIN
     Indication: ANAPLASTIC THYROID CANCER
     Dosage: 75 MG/MQ EVERY 21 DAYS
  3. LEVOTHYROXIN [Concomitant]
     Active Substance: LEVOTHYROXINE
  4. CISPLATIN. [Suspect]
     Active Substance: CISPLATIN
     Indication: ANAPLASTIC THYROID CANCER
     Dosage: 80 MG/MQ EVERY 21 DAYS
  5. CALCIUM CARBONATE. [Concomitant]
     Active Substance: CALCIUM CARBONATE
  6. ANTIHYPERTENSIVE DRUGS [Concomitant]
     Active Substance: UNSPECIFIED INGREDIENT
     Indication: HYPERTENSION

REACTIONS (3)
  - Weight decreased [Unknown]
  - Dysphagia [Unknown]
  - Mucosal inflammation [Unknown]
